FAERS Safety Report 8146868-7 (Version None)
Quarter: 2012Q1

REPORT INFORMATION
  Report Type: 
  Country: None (occurrence: None)
  Receive Date: 20120217
  Receipt Date: 20110804
  Transmission Date: 20120608
  Serious: No
  Sender: FDA-Public Use
  Company Number: US-ABBOTT-11P-163-0843925-00

PATIENT
  Sex: Female
  Weight: 72.64 kg

DRUGS (4)
  1. SILVER MVT [Concomitant]
     Indication: PRODUCT USED FOR UNKNOWN INDICATION
  2. SIMCOR [Suspect]
     Indication: BLOOD CHOLESTEROL ABNORMAL
     Dosage: 500MG/20MG X2 AT BEDTIME
     Dates: start: 20100101
  3. HYDROCHLOROTHIAZIDE [Concomitant]
     Indication: PRODUCT USED FOR UNKNOWN INDICATION
  4. PRILOSEC [Concomitant]
     Indication: PRODUCT USED FOR UNKNOWN INDICATION

REACTIONS (9)
  - FEELING HOT [None]
  - MIDDLE INSOMNIA [None]
  - GASTRIC DISORDER [None]
  - ERYTHEMA [None]
  - MUSCLE SPASMS [None]
  - ABDOMINAL PAIN UPPER [None]
  - SLEEP DISORDER [None]
  - PRURITUS [None]
  - FLUSHING [None]
